FAERS Safety Report 8272135-7 (Version None)
Quarter: 2012Q2

REPORT INFORMATION
  Report Type: 
  Country: None (occurrence: None)
  Receive Date: 20120410
  Receipt Date: 20120319
  Transmission Date: 20120825
  Serious: Yes (Hospitalization)
  Sender: FDA-Public Use
  Company Number: US-ASTRAZENECA-2012SE19064

PATIENT
  Age: 58 Year
  Sex: Male

DRUGS (13)
  1. SYNTHROID [Concomitant]
     Route: 048
  2. PANTOPRAZOLE SODIUM [Concomitant]
     Route: 048
  3. SIMVASTATIN [Concomitant]
     Route: 048
  4. VANDETANIB [Suspect]
     Indication: THYROID CANCER
     Route: 048
  5. MAGNESIA [Concomitant]
     Route: 048
  6. VITAMIN C CR [Concomitant]
     Route: 048
  7. ZOLPIDEM TARTRATE [Concomitant]
     Route: 048
  8. HYDROCODONE BITARTRATE AND ACETAMINOPHEN [Concomitant]
     Dosage: 5-500 MG PRN
     Route: 048
  9. METFORMIN HCL [Concomitant]
     Route: 048
  10. MIRALAX [Concomitant]
     Dosage: DAILY
     Route: 048
  11. RITALIN LA [Concomitant]
     Route: 048
  12. OXYCODONE HCL [Concomitant]
     Route: 048
  13. SENNA-MINT WAF [Concomitant]
     Route: 048

REACTIONS (1)
  - CEREBROVASCULAR ACCIDENT [None]
